FAERS Safety Report 14290413 (Version 4)
Quarter: 2018Q1

REPORT INFORMATION
  Report Type: Spontaneous
  Country: US (occurrence: US)
  Receive Date: 20171215
  Receipt Date: 20180321
  Transmission Date: 20180509
  Serious: Yes (Death, Hospitalization, Disabling)
  Sender: FDA-Public Use
  Company Number: US-JNJFOC-20171217595

PATIENT
  Sex: Male
  Weight: 62 kg

DRUGS (1)
  1. DARZALEX [Suspect]
     Active Substance: DARATUMUMAB
     Indication: IMMUNE TOLERANCE INDUCTION
     Dosage: * 4 DOSES/ THERAPY DATES: OCT 16, 24, 30 AND NOV 7, 2017
     Route: 042
     Dates: start: 20171016

REACTIONS (4)
  - Cardiomyopathy [Fatal]
  - Off label use [Unknown]
  - Cardiac failure [Fatal]
  - Product use in unapproved indication [Unknown]
